FAERS Safety Report 6651145-7 (Version None)
Quarter: 2010Q1

REPORT INFORMATION
  Report Type: 
  Country: None (occurrence: None)
  Receive Date: 20100325
  Receipt Date: 20100310
  Transmission Date: 20100710
  Serious: No
  Sender: FDA-Public Use
  Company Number: US-B.I. PHARMACEUTICALS,INC./RIDGEFIELD-2010-BP-02911BP

PATIENT

DRUGS (2)
  1. MICARDIS [Suspect]
  2. DIURETIC [Concomitant]

REACTIONS (1)
  - POLLAKIURIA [None]
